FAERS Safety Report 23119313 (Version 1)
Quarter: 2023Q4

REPORT INFORMATION
  Report Type: Spontaneous
  Country: US (occurrence: None)
  Receive Date: 20231028
  Receipt Date: 20231028
  Transmission Date: 20240109
  Serious: Yes (Hospitalization)
  Sender: FDA-Public Use
  Company Number: US-ROCHE-3446160

PATIENT
  Sex: Male
  Weight: 110.78 kg

DRUGS (2)
  1. ALECENSA [Suspect]
     Active Substance: ALECTINIB HYDROCHLORIDE
     Indication: Lung neoplasm malignant
     Route: 048
     Dates: start: 202201
  2. ALECENSA [Suspect]
     Active Substance: ALECTINIB HYDROCHLORIDE
     Dosage: TAKE 4 CAPSULES BY MOUTH TWICE DAILY WITH FOOD SWALLOW CAPSULES WHOLE.
     Route: 048

REACTIONS (2)
  - Psoriasis [Unknown]
  - Flank pain [Unknown]
